FAERS Safety Report 8470410-4 (Version None)
Quarter: 2012Q2

REPORT INFORMATION
  Report Type: 
  Country: None (occurrence: None)
  Receive Date: 20120620
  Receipt Date: 20120613
  Transmission Date: 20120825
  Serious: Yes (Life-Threatening, Hospitalization)
  Sender: FDA-Public Use
  Company Number: DAV-AE-ALP-12-24

PATIENT
  Age: 39 Year
  Sex: Female
  Weight: 51 kg

DRUGS (2)
  1. VENLAFAXINE HCL EXTENDED-RELEASE [Suspect]
     Indication: DEPRESSION
     Dosage: 7.5 GRAMS,
  2. ALPRAZOLAM [Suspect]
     Indication: DEPRESSION
     Dosage: 45 MG

REACTIONS (13)
  - HYPERHIDROSIS [None]
  - CONFUSIONAL STATE [None]
  - TREMOR [None]
  - HYPERREFLEXIA [None]
  - URINARY RETENTION [None]
  - HYPOGLYCAEMIA [None]
  - MYDRIASIS [None]
  - HEARING IMPAIRED [None]
  - MULTIPLE DRUG OVERDOSE INTENTIONAL [None]
  - SEROTONIN SYNDROME [None]
  - ALTERED STATE OF CONSCIOUSNESS [None]
  - AGITATION [None]
  - SINUS TACHYCARDIA [None]
